FAERS Safety Report 15881951 (Version 3)
Quarter: 2019Q2

REPORT INFORMATION
  Report Type: Spontaneous
  Country: JP (occurrence: JP)
  Receive Date: 20190128
  Receipt Date: 20190618
  Transmission Date: 20190711
  Serious: Yes (Death, Hospitalization, Disabling, Other)
  Sender: FDA-Public Use
  Company Number: JP-009507513-1809JPN002129J

PATIENT
  Age: 56 Year
  Sex: Female
  Weight: 38 kg

DRUGS (11)
  1. BAYASPIRIN [Concomitant]
     Active Substance: ASPIRIN
     Dosage: 100 MILLIGRAM, QD
     Route: 048
  2. PRASUGREL HYDROCHLORIDE [Concomitant]
     Active Substance: PRASUGREL HYDROCHLORIDE
     Dosage: 3.75 MILLIGRAM, QD
     Route: 048
  3. FAMOTIDINE D [Concomitant]
     Active Substance: FAMOTIDINE
     Dosage: 20 MILLIGRAM, QD
     Route: 048
  4. NICORANDIL [Concomitant]
     Active Substance: NICORANDIL
     Dosage: 5 MILLIGRAM, TID
     Route: 048
  5. MAGNESIUM (UNSPECIFIED) [Concomitant]
     Active Substance: MAGNESIUM
     Dosage: 330 MILLIGRAM, TID
     Route: 048
  6. PANTETHINE [Concomitant]
     Active Substance: PANTETHINE
     Dosage: 100 MILLIGRAM, TID
     Route: 048
  7. MS CONTIN [Concomitant]
     Active Substance: MORPHINE SULFATE
     Indication: CANCER PAIN
     Dosage: 30 MILLIGRAM, BID
     Route: 048
  8. KEYTRUDA [Suspect]
     Active Substance: PEMBROLIZUMAB
     Indication: NON-SMALL CELL LUNG CANCER
     Dosage: 200 MG, Q3W
     Route: 041
     Dates: start: 20180814, end: 20180814
  9. BISOPROLOL FUMARATE. [Concomitant]
     Active Substance: BISOPROLOL FUMARATE
     Dosage: 0.625 MILLIGRAM, QID
     Route: 048
  10. LOXOPROFEN [Concomitant]
     Active Substance: LOXOPROFEN
     Dosage: 60 MILLIGRAM, TID
     Route: 048
  11. OPSO [Concomitant]
     Active Substance: MORPHINE HYDROCHLORIDE
     Indication: CANCER PAIN
     Dosage: 10 MILLIGRAM
     Route: 048

REACTIONS (2)
  - Death [Fatal]
  - Interstitial lung disease [Recovered/Resolved with Sequelae]

NARRATIVE: CASE EVENT DATE: 20180816
